FAERS Safety Report 9858671 (Version 2)
Quarter: 2014Q1

REPORT INFORMATION
  Report Type: Spontaneous
  Country: IT (occurrence: IT)
  Receive Date: 20140131
  Receipt Date: 20140303
  Transmission Date: 20141002
  Serious: Yes (Other)
  Sender: FDA-Public Use
  Company Number: IT-SA-2014SA009845

PATIENT
  Age: 81 Year
  Sex: Female

DRUGS (1)
  1. FERLIXIT [Suspect]
     Indication: ANAEMIA
     Route: 042
     Dates: start: 20131230, end: 20140116

REACTIONS (6)
  - Pharyngeal oedema [Recovered/Resolved]
  - Abdominal pain [Recovered/Resolved]
  - Dyspnoea [Recovered/Resolved]
  - Erythema [Recovered/Resolved]
  - Nausea [Recovered/Resolved]
  - Vomiting [Recovered/Resolved]
